FAERS Safety Report 12290163 (Version 2)
Quarter: 2016Q2

REPORT INFORMATION
  Report Type: Spontaneous
  Country: JP (occurrence: JP)
  Receive Date: 20160421
  Receipt Date: 20160429
  Transmission Date: 20160815
  Serious: Yes (Hospitalization)
  Sender: FDA-Public Use
  Company Number: JP-009507513-1604JPN001197

PATIENT
  Age: 52 Year
  Sex: Female

DRUGS (11)
  1. REFLEX [Suspect]
     Active Substance: MIRTAZAPINE
     Dosage: 30 MG, QD
     Route: 048
     Dates: start: 20160311, end: 20160317
  2. REFLEX [Suspect]
     Active Substance: MIRTAZAPINE
     Dosage: DOSE 45MG/ DAY, ONCE IN THE EVENING (QPM)
     Route: 048
     Dates: start: 20160318, end: 20160328
  3. BACILLUS COAGULANS (+) BACILLUS PUMILUS (+) CLOSTRIDIUM BUTYRICUM (+) [Concomitant]
     Indication: CONSTIPATION
     Dosage: 8 TABLETS/DAY
     Route: 048
     Dates: start: 20160311, end: 20160328
  4. LANSOPRAZOLE. [Concomitant]
     Active Substance: LANSOPRAZOLE
     Indication: GASTROOESOPHAGEAL REFLUX DISEASE
     Dosage: 15 MG, QD
     Route: 048
     Dates: start: 20160311, end: 20160328
  5. MAGNESIUM OXIDE. [Concomitant]
     Active Substance: MAGNESIUM OXIDE
     Indication: CONSTIPATION
     Dosage: DOSE 1320MG/ DAY
     Route: 048
     Dates: start: 20160317, end: 20160328
  6. ZOLPIDEM TARTRATE. [Concomitant]
     Active Substance: ZOLPIDEM TARTRATE
     Indication: INSOMNIA
     Dosage: 10 MG, QD
     Route: 048
     Dates: start: 20160307
  7. NITRAZEPAM [Concomitant]
     Active Substance: NITRAZEPAM
     Indication: INSOMNIA
     Dosage: 10 MG, QD
     Route: 048
     Dates: start: 20160304
  8. MOSAPRIDE CITRATE [Concomitant]
     Active Substance: MOSAPRIDE CITRATE
     Indication: CONSTIPATION
     Dosage: 20 MG, QD
     Route: 048
     Dates: start: 20160311, end: 20160328
  9. LYRICA [Suspect]
     Active Substance: PREGABALIN
     Indication: PAIN
     Dosage: 300 MG, QD
     Route: 048
     Dates: start: 20160304, end: 20160328
  10. REFLEX [Suspect]
     Active Substance: MIRTAZAPINE
     Indication: DEPRESSION
     Dosage: 15 MG, QD
     Route: 048
     Dates: start: 20160304, end: 20160310
  11. SYMMETREL [Suspect]
     Active Substance: AMANTADINE HYDROCHLORIDE
     Indication: PARKINSONISM
     Dosage: 200 MG, BID (MORNING AND EVENING)
     Route: 048
     Dates: start: 20160304, end: 20160328

REACTIONS (1)
  - Drug-induced liver injury [Recovering/Resolving]

NARRATIVE: CASE EVENT DATE: 20160326
